FAERS Safety Report 11173620 (Version 4)
Quarter: 2015Q3

REPORT INFORMATION
  Report Type: Spontaneous
  Country: BR (occurrence: BR)
  Receive Date: 20150609
  Receipt Date: 20150702
  Transmission Date: 20151125
  Serious: Yes (Other)
  Sender: FDA-Public Use
  Company Number: BR-PFIZER INC-2015147586

PATIENT
  Age: 11 Year
  Sex: Female

DRUGS (2)
  1. GENOTROPIN [Suspect]
     Active Substance: SOMATROPIN
     Dosage: UNK
     Dates: start: 20150607, end: 201506
  2. GENOTROPIN [Suspect]
     Active Substance: SOMATROPIN
     Indication: GROWTH RETARDATION
     Dosage: 1 MG, 1X/DAY (SEVEN TIMES PER WEEK)
     Route: 058
     Dates: start: 20150414, end: 201505

REACTIONS (11)
  - Hypersensitivity [Unknown]
  - Lung disorder [Recovered/Resolved]
  - Swelling face [Recovered/Resolved]
  - Feeling abnormal [Unknown]
  - Hypoaesthesia [Unknown]
  - Swelling [Not Recovered/Not Resolved]
  - Eye swelling [Recovered/Resolved]
  - Blister [Unknown]
  - Peripheral swelling [Recovered/Resolved]
  - Ear swelling [Not Recovered/Not Resolved]
  - Formication [Unknown]

NARRATIVE: CASE EVENT DATE: 2015
